FAERS Safety Report 8381303-5 (Version None)
Quarter: 2012Q2

REPORT INFORMATION
  Report Type: 
  Country: None (occurrence: None)
  Receive Date: 20120523
  Receipt Date: 20120518
  Transmission Date: 20120825
  Serious: Yes (Other)
  Sender: FDA-Public Use
  Company Number: JP-ROXANE LABORATORIES, INC.-2012-RO-01273RO

PATIENT
  Age: 58 Year
  Sex: Female

DRUGS (4)
  1. EXEMESTANE [Suspect]
     Indication: BREAST CANCER STAGE III
     Dosage: 25 MG
  2. PACLITAXEL [Suspect]
  3. PACLITAXEL [Suspect]
     Indication: BREAST CANCER STAGE III
  4. DOXORUBICIN HCL [Suspect]
     Indication: BREAST CANCER STAGE III

REACTIONS (2)
  - TOXICITY TO VARIOUS AGENTS [None]
  - NEUROPATHY PERIPHERAL [None]
